FAERS Safety Report 13359540 (Version 1)
Quarter: 2017Q1

REPORT INFORMATION
  Report Type: Spontaneous
  Country: FR (occurrence: FR)
  Receive Date: 20170322
  Receipt Date: 20170322
  Transmission Date: 20170429
  Serious: Yes (Other)
  Sender: FDA-Public Use
  Company Number: FR-SA-2017SA045418

PATIENT
  Age: 92 Year
  Sex: Female

DRUGS (2)
  1. LOVENOX [Suspect]
     Active Substance: ENOXAPARIN SODIUM
     Dosage: MORNING AND EVENING
     Route: 058
     Dates: start: 20161222, end: 20161230
  2. PREVISCAN [Suspect]
     Active Substance: FLUINDIONE
     Indication: ATRIAL FIBRILLATION
     Dosage: DAILY DOSE WAS ACCORDING TO INR
     Route: 048
     Dates: start: 20161226, end: 20161230

REACTIONS (2)
  - International normalised ratio increased [Unknown]
  - Muscle haemorrhage [Unknown]

NARRATIVE: CASE EVENT DATE: 20161230
